FAERS Safety Report 8624411-3 (Version None)
Quarter: 2012Q3

REPORT INFORMATION
  Report Type: 
  Country: None (occurrence: None)
  Receive Date: 20120827
  Receipt Date: 20120817
  Transmission Date: 20120928
  Serious: Yes (Hospitalization)
  Sender: FDA-Public Use
  Company Number: US-ASTRAZENECA-2012SE59967

PATIENT
  Age: 82 Year
  Sex: Female
  Weight: 118.8 kg

DRUGS (9)
  1. ANONOX [Concomitant]
     Indication: ANTICOAGULANT THERAPY
     Dosage: 25 MG/ 200 MG, DAILY
     Route: 048
  2. XANAX [Concomitant]
     Indication: ANXIETY
     Route: 048
  3. D3 [Concomitant]
     Indication: SUPPLEMENTATION THERAPY
     Route: 048
  4. NEXIUM [Suspect]
     Indication: GASTROOESOPHAGEAL REFLUX DISEASE
     Route: 048
     Dates: start: 20100101, end: 20120501
  5. DITROPAN [Concomitant]
     Indication: BLADDER DISORDER
     Route: 048
  6. DEXILANT [Concomitant]
     Indication: GASTROOESOPHAGEAL REFLUX DISEASE
     Route: 048
  7. LOVAZA [Concomitant]
     Indication: SUPPLEMENTATION THERAPY
     Route: 048
  8. OMEPRAZOLE [Suspect]
     Indication: GASTROOESOPHAGEAL REFLUX DISEASE
     Route: 048
     Dates: start: 20120501
  9. PRESERVESION [Concomitant]
     Indication: SUPPLEMENTATION THERAPY
     Route: 048

REACTIONS (14)
  - BONE DISORDER [None]
  - CONTUSION [None]
  - ASTHENIA [None]
  - OESOPHAGEAL STENOSIS [None]
  - PERIPHERAL NERVE LESION [None]
  - FALL [None]
  - BODY HEIGHT DECREASED [None]
  - GASTROOESOPHAGEAL REFLUX DISEASE [None]
  - CHEST PAIN [None]
  - SENSATION OF HEAVINESS [None]
  - HAEMOPTYSIS [None]
  - DRUG DOSE OMISSION [None]
  - HEAD INJURY [None]
  - DRUG INEFFECTIVE [None]
